FAERS Safety Report 9268401 (Version 1)
Quarter: 2013Q2

REPORT INFORMATION
  Report Type: Spontaneous
  Country: US (occurrence: US)
  Receive Date: 20130502
  Receipt Date: 20130502
  Transmission Date: 20140414
  Serious: No
  Sender: FDA-Public Use
  Company Number: US-ALEXION-A201202290

PATIENT
  Age: 76 Year
  Sex: Male
  Weight: 89.8 kg

DRUGS (7)
  1. SOLIRIS 300MG [Suspect]
     Indication: PAROXYSMAL NOCTURNAL HAEMOGLOBINURIA
     Dosage: UNK
     Route: 042
     Dates: start: 20121116
  2. DIFLUCAN [Concomitant]
     Dosage: 100 MG, QD
     Route: 048
  3. DILTIAZEM ER [Concomitant]
     Dosage: 360 MG, QD
     Route: 048
  4. MINOCYCLINE HCL [Concomitant]
     Dosage: 100 MG, QD
     Route: 048
  5. NYSTATIN [Concomitant]
     Dosage: UNK UNK, QID
     Route: 048
  6. VITAMIN B-12 [Concomitant]
     Dosage: 25000 MEQ, UNK
     Route: 060
  7. VITAMIN D3 [Concomitant]
     Dosage: UNK UNK, QD
     Route: 048

REACTIONS (13)
  - Dyspnoea [Not Recovered/Not Resolved]
  - Pain [Not Recovered/Not Resolved]
  - Contusion [Unknown]
  - Fall [Unknown]
  - Arthralgia [Not Recovered/Not Resolved]
  - Fatigue [Not Recovered/Not Resolved]
  - Oedema peripheral [Not Recovered/Not Resolved]
  - Joint swelling [Not Recovered/Not Resolved]
  - Anaemia [Unknown]
  - Decreased appetite [Unknown]
  - Asthenia [Unknown]
  - Excoriation [Unknown]
  - Erythema [Unknown]
